FAERS Safety Report 9842162 (Version 1)
Quarter: 2014Q1

REPORT INFORMATION
  Report Type: Spontaneous
  Country: US (occurrence: US)
  Receive Date: 20140124
  Receipt Date: 20140124
  Transmission Date: 20141002
  Serious: No
  Sender: FDA-Public Use
  Company Number: US-TEVA-458342USA

PATIENT
  Age: 18 Year
  Sex: Female
  Weight: 59.02 kg

DRUGS (1)
  1. QUARTETTE [Suspect]
     Indication: CONTRACEPTION
     Dates: start: 20131227

REACTIONS (1)
  - Vaginal haemorrhage [Not Recovered/Not Resolved]
